FAERS Safety Report 7725745-7 (Version None)
Quarter: 2011Q3

REPORT INFORMATION
  Report Type: 
  Country: None (occurrence: None)
  Receive Date: 20110902
  Receipt Date: 20110824
  Transmission Date: 20111222
  Serious: Yes (Life-Threatening, Hospitalization, Other)
  Sender: FDA-Public Use
  Company Number: JP-SANOFI-AVENTIS-2011SA045573

PATIENT
  Age: 93 Year
  Sex: Female

DRUGS (7)
  1. LASIX [Suspect]
     Route: 048
     Dates: start: 20110606, end: 20110709
  2. ALLOPURINOL [Concomitant]
     Route: 048
  3. ERISPAN [Concomitant]
     Route: 048
  4. KAYEXALATE [Suspect]
     Route: 048
     Dates: start: 20110606, end: 20110709
  5. AMLODIPINE [Concomitant]
     Route: 048
  6. ATORVASTATIN [Concomitant]
     Route: 048
  7. ALL OTHER THERAPEUTIC PRODUCTS [Concomitant]
     Route: 048

REACTIONS (2)
  - PSEUDOMEMBRANOUS COLITIS [None]
  - HYPOKALAEMIA [None]
